FAERS Safety Report 7113492-4 (Version None)
Quarter: 2010Q4

REPORT INFORMATION
  Report Type: 
  Country: None (occurrence: None)
  Receive Date: 20101119
  Receipt Date: 20101001
  Transmission Date: 20110411
  Serious: No
  Sender: FDA-Public Use
  Company Number: US-PFIZER INC-US-WYE-H16689210

PATIENT
  Sex: Female
  Weight: 100 kg

DRUGS (5)
  1. PREMARIN [Suspect]
     Indication: HORMONE REPLACEMENT THERAPY
     Dosage: 0.625 MG, 1X/DAY
     Route: 065
     Dates: start: 19941201, end: 20080101
  2. PREMARIN [Suspect]
     Dosage: ATTEMPTED TO WEAN OFF, DOSES UNSPECIFIED
     Route: 065
     Dates: start: 20080101
  3. PREMARIN [Suspect]
     Dosage: 0.625 MG, UNK
     Route: 048
     Dates: start: 20100401
  4. LISINOPRIL [Concomitant]
  5. DILTIAZEM [Concomitant]

REACTIONS (1)
  - DRUG INEFFECTIVE [None]
